FAERS Safety Report 5633072-7 (Version None)
Quarter: 2008Q1

REPORT INFORMATION
  Report Type: 
  Country: None (occurrence: None)
  Receive Date: 20080221
  Receipt Date: 20080212
  Transmission Date: 20080703
  Serious: Yes (Other)
  Sender: FDA-Public Use
  Company Number: FR-AVENTIS-200810574FR

PATIENT
  Age: 91 Year
  Sex: Female

DRUGS (8)
  1. TAVANIC [Suspect]
     Route: 048
     Dates: start: 20071024, end: 20071102
  2. LOVENOX [Suspect]
     Route: 058
  3. ZYPREXA [Suspect]
     Indication: BIPOLAR DISORDER
     Route: 048
     Dates: end: 20071102
  4. NEXIUM [Suspect]
     Route: 048
  5. ESCITALOPRAM [Suspect]
     Indication: DEPRESSION
     Route: 048
     Dates: start: 20071012
  6. ZOLPIDEM [Suspect]
     Indication: INSOMNIA
     Route: 048
  7. AUGMENTIN '125' [Concomitant]
     Dates: start: 20071017, end: 20071021
  8. ROCEPHIN [Concomitant]
     Dates: start: 20071017, end: 20071022

REACTIONS (1)
  - AGRANULOCYTOSIS [None]
